FAERS Safety Report 12535357 (Version 1)
Quarter: 2016Q3

REPORT INFORMATION
  Report Type: Spontaneous
  Country: CZ (occurrence: CZ)
  Receive Date: 20160707
  Receipt Date: 20160707
  Transmission Date: 20161109
  Serious: Yes (Other)
  Sender: FDA-Public Use
  Company Number: CZ-ACCORD-042109

PATIENT
  Sex: Female

DRUGS (12)
  1. ZOMETA [Concomitant]
     Active Substance: ZOLEDRONIC ACID
     Indication: BREAST CANCER
     Route: 042
     Dates: start: 201204, end: 201301
  2. TAMOXIFEN/TAMOXIFEN CITRATE [Concomitant]
     Dates: start: 200707
  3. NAVELBINE [Concomitant]
     Active Substance: VINORELBINE TARTRATE
     Dosage: NOV-2013 23RD APPLICATIONS AND THAN SUBSEQUENTLY WITHDRAWN
     Route: 042
     Dates: start: 201304
  4. FEMARA [Concomitant]
     Active Substance: LETROZOLE
     Indication: ARTHRALGIA
     Dates: start: 201104, end: 201108
  5. HERCEPTIN [Concomitant]
     Active Substance: TRASTUZUMAB
     Indication: BREAST CANCER
     Dates: start: 201008
  6. XGEVA [Concomitant]
     Active Substance: DENOSUMAB
     Indication: BREAST CANCER
     Dosage: THAN ON OCT-2013 AND ON NOV-2013 IT WAS DISCONTINUED
     Dates: start: 201311, end: 201311
  7. CAPECITABINE. [Suspect]
     Active Substance: CAPECITABINE
     Indication: BREAST CANCER
     Route: 048
     Dates: start: 201204, end: 201209
  8. PACLITAXEL/PACLITAXEL LIPOSOME [Suspect]
     Active Substance: PACLITAXEL
     Indication: BREAST CANCER
     Dosage: JAN-MAR-2011, 5TH, 6TH, 7TH SERIES OF PACLITAXEL
     Dates: start: 201101, end: 201103
  9. BONDRONAT [Concomitant]
     Active Substance: IBANDRONIC ACID
     Indication: BREAST CANCER
     Dosage: SUBSEQUENTLY WITHDRAWN AFTERWARDS
     Route: 042
     Dates: start: 20120301
  10. MEGAPLEX [Concomitant]
     Dates: start: 201211, end: 201212
  11. AVASTIN [Concomitant]
     Active Substance: BEVACIZUMAB
     Indication: BREAST CANCER METASTATIC
     Dosage: 1-MAR-2012, AT 15 MG/KG, APR AND OCT-2012, 5-8/2012 AT 15 MG/KG, SEP-2012 AT SAME DOSE
     Dates: start: 201304
  12. FASLODEX [Concomitant]
     Active Substance: FULVESTRANT
     Indication: BACK PAIN
     Dosage: ONCE IN 28 DAYS
     Route: 058
     Dates: start: 201109

REACTIONS (3)
  - Off label use [Unknown]
  - Neurotoxicity [Unknown]
  - Palmar-plantar erythrodysaesthesia syndrome [Unknown]
